FAERS Safety Report 6409276-2 (Version None)
Quarter: 2009Q4

REPORT INFORMATION
  Report Type: 
  Country: None (occurrence: None)
  Receive Date: 20091019
  Receipt Date: 20091019
  Transmission Date: 20100525
  Serious: Yes (Other)
  Sender: FDA-Public Use
  Company Number: None

PATIENT
  Age: 25 Year
  Sex: Female

DRUGS (2)
  1. BOTOX [Suspect]
  2. BOTOX [Concomitant]

REACTIONS (5)
  - ABASIA [None]
  - IMMOBILE [None]
  - MIGRAINE [None]
  - PRODUCT CONTAMINATION [None]
  - TORTICOLLIS [None]
